FAERS Safety Report 8819744 (Version 4)
Quarter: 2013Q1

REPORT INFORMATION
  Report Type: Report from Study
  Country: DE (occurrence: DE)
  Receive Date: 20121001
  Receipt Date: 20130131
  Transmission Date: 20140127
  Serious: Yes (Hospitalization, Other)
  Sender: FDA-Public Use
  Company Number: DE-GENZYME-CAMP-1002449

PATIENT
  Age: 79 Year
  Sex: Male
  Weight: 69 kg

DRUGS (12)
  1. CAMPATH [Suspect]
     Indication: CHRONIC LYMPHOCYTIC LEUKAEMIA
     Dosage: 30 MG, QD, 3X WEEK, CYCLE 1
     Route: 058
     Dates: start: 20110216, end: 20110311
  2. CAMPATH [Suspect]
     Dosage: 30 MG, QD, 3X WEEK, CYCLE 2
     Route: 058
     Dates: start: 20110321, end: 20110415
  3. CAMPATH [Suspect]
     Dosage: 30 MG, UNK
     Route: 058
     Dates: start: 20110427
  4. DEXAMETHASONE [Suspect]
     Indication: CHRONIC LYMPHOCYTIC LEUKAEMIA
     Dosage: 40 MG, QD, CYCLE 1
     Route: 048
     Dates: start: 20110216, end: 20110303
  5. DEXAMETHASONE [Suspect]
     Dosage: 40 MG, QD, CYCLE 2
     Route: 048
     Dates: start: 20110321, end: 20110407
  6. PEGFILGRASTIM [Suspect]
     Indication: PRODUCT USED FOR UNKNOWN INDICATION
     Dosage: 6 MG, Q2W
     Route: 058
     Dates: start: 20110216, end: 20110228
  7. PEGFILGRASTIM [Suspect]
     Dosage: 6 MG, Q2W
     Route: 058
     Dates: start: 20110321, end: 20110321
  8. PARACETAMOL [Concomitant]
     Indication: PREMEDICATION
     Dosage: UNK
     Route: 065
     Dates: start: 2011
  9. XYZALL [Concomitant]
     Indication: PREMEDICATION
     Dosage: 5 MG, UNK
     Route: 065
     Dates: start: 2011
  10. SULFAMETHOXAZOLE [Concomitant]
     Indication: INFECTION PROPHYLAXIS
     Dosage: 800 MG, QD
     Route: 048
     Dates: start: 20110215, end: 20110416
  11. BACTRIM [Concomitant]
     Indication: INFECTION PROPHYLAXIS
     Dosage: UNK
     Route: 065
     Dates: start: 20120322
  12. ZELITREX [Concomitant]
     Indication: INFECTION PROPHYLAXIS
     Dosage: UNK
     Route: 065
     Dates: start: 20120322

REACTIONS (11)
  - Platelet count decreased [Recovered/Resolved]
  - Pyrexia [Recovered/Resolved]
  - Headache [Recovered/Resolved]
  - Cytomegalovirus viraemia [Recovered/Resolved]
  - Dizziness exertional [Recovered/Resolved with Sequelae]
  - Dyspnoea [Recovered/Resolved]
  - Aortic valve sclerosis [Not Recovered/Not Resolved]
  - Tricuspid valve incompetence [Recovered/Resolved]
  - Bone marrow leukaemic cell infiltration [Unknown]
  - Mitral valve incompetence [Not Recovered/Not Resolved]
  - Atrioventricular block [Recovered/Resolved]
